FAERS Safety Report 5254990-8 (Version None)
Quarter: 2007Q1

REPORT INFORMATION
  Report Type: 
  Country: None (occurrence: None)
  Receive Date: 20070305
  Receipt Date: 20070227
  Transmission Date: 20070707
  Serious: Yes (Other)
  Sender: FDA-Public Use
  Company Number: MX-BRISTOL-MYERS SQUIBB COMPANY-13693908

PATIENT
  Age: 45 Year
  Sex: Female

DRUGS (4)
  1. ABATACEPT [Suspect]
     Indication: RHEUMATOID ARTHRITIS
     Route: 042
     Dates: start: 20030422, end: 20070122
  2. METHOTREXATE SODIUM [Suspect]
     Route: 048
     Dates: start: 20051005
  3. AZULFIDINE [Concomitant]
     Dates: start: 20040101
  4. CELEBREX [Concomitant]
     Dates: start: 20021201

REACTIONS (1)
  - ACUTE LYMPHOCYTIC LEUKAEMIA [None]
